FAERS Safety Report 5587088-X (Version None)
Quarter: 2008Q1

REPORT INFORMATION
  Report Type: 
  Country: None (occurrence: None)
  Receive Date: 20080110
  Receipt Date: 20080103
  Transmission Date: 20080703
  Serious: Yes (Other)
  Sender: FDA-Public Use
  Company Number: B0376992A

PATIENT
  Age: 38 Year
  Sex: Male

DRUGS (3)
  1. PAROXETINE [Suspect]
     Indication: ANXIETY
     Route: 065
     Dates: start: 19980212
  2. EFFEXOR [Concomitant]
     Route: 065
     Dates: start: 20020618
  3. DIAZEPAM [Concomitant]
     Route: 065
     Dates: start: 20020706

REACTIONS (16)
  - AGGRESSION [None]
  - AGITATION [None]
  - ANXIETY [None]
  - DEPRESSION [None]
  - DISTURBANCE IN ATTENTION [None]
  - DIZZINESS [None]
  - DRUG WITHDRAWAL SYNDROME [None]
  - INFLUENZA [None]
  - LETHARGY [None]
  - LIBIDO INCREASED [None]
  - MEMORY IMPAIRMENT [None]
  - MOOD SWINGS [None]
  - NIGHTMARE [None]
  - PARAESTHESIA [None]
  - SLEEP DISORDER [None]
  - TREMOR [None]
